FAERS Safety Report 15436088 (Version 1)
Quarter: 2018Q3

REPORT INFORMATION
  Report Type: Report from Study
  Country: US (occurrence: US)
  Receive Date: 20180927
  Receipt Date: 20180927
  Transmission Date: 20181010
  Serious: Yes (Hospitalization, Disabling)
  Sender: FDA-Public Use
  Company Number: US-SAKK-2018SA243069AA

PATIENT
  Age: 73 Year
  Sex: Female

DRUGS (3)
  1. INSULIN GLARGINE [Suspect]
     Active Substance: INSULIN GLARGINE
     Indication: BLOOD GLUCOSE ABNORMAL
     Dosage: 34 U, QD
  2. INSULIN GLARGINE [Suspect]
     Active Substance: INSULIN GLARGINE
     Dosage: 30 U, QD
  3. METFORMIN [Concomitant]
     Active Substance: METFORMIN HYDROCHLORIDE
     Dosage: 500 MG, BID

REACTIONS (9)
  - Disability [Not Recovered/Not Resolved]
  - Respiratory rate decreased [Unknown]
  - Abdominal discomfort [Recovered/Resolved]
  - Heart rate increased [Recovered/Resolved]
  - Crying [Recovered/Resolved]
  - Cardiac disorder [Not Recovered/Not Resolved]
  - Drug dose omission [Unknown]
  - Hallucination [Recovered/Resolved]
  - Inability to afford medication [Unknown]
